FAERS Safety Report 4944568-5 (Version None)
Quarter: 2006Q1

REPORT INFORMATION
  Report Type: 
  Country: None (occurrence: None)
  Receive Date: 20060117
  Receipt Date: 20051114
  Transmission Date: 20060701
  Serious: No
  Sender: FDA-Public Use
  Company Number: 2005156633

PATIENT
  Age: 80 Year
  Sex: Female
  Weight: 58.9676 kg

DRUGS (4)
  1. MACUGEN [Suspect]
     Indication: MACULAR DEGENERATION
     Dosage: 1 IN 6 WK, INTRAVITREOUS
     Dates: start: 20050222, end: 20050901
  2. METHYLPREDNISOLONE [Suspect]
     Indication: PAIN
     Dates: start: 20050101
  3. ALL OTHER THERAPEUTIC PRODUCTS [Concomitant]
  4. LISINOPRIL [Concomitant]

REACTIONS (3)
  - BONE PAIN [None]
  - MYALGIA [None]
  - NEURALGIA [None]
